FAERS Safety Report 9570996 (Version 2)
Quarter: 2013Q4

REPORT INFORMATION
  Report Type: Spontaneous
  Country: US (occurrence: US)
  Receive Date: 20131001
  Receipt Date: 20131010
  Transmission Date: 20140711
  Serious: Yes (Hospitalization, Other)
  Sender: FDA-Public Use
  Company Number: US-CELGENEUS-163-21880-13093507

PATIENT
  Age: 78 Year
  Sex: Male

DRUGS (1)
  1. REVLIMID [Suspect]
     Indication: PLASMA CELL MYELOMA
     Dosage: 10 MILLIGRAM
     Route: 048
     Dates: start: 20130802, end: 20130822

REACTIONS (6)
  - Head injury [Not Recovered/Not Resolved]
  - Dehydration [Not Recovered/Not Resolved]
  - Haemorrhage intracranial [Unknown]
  - Fall [Unknown]
  - General physical health deterioration [Unknown]
  - Therapeutic response decreased [Unknown]
